FAERS Safety Report 14435941 (Version 1)
Quarter: 2018Q1

REPORT INFORMATION
  Report Type: Spontaneous
  Country: US (occurrence: US)
  Receive Date: 20180124
  Receipt Date: 20180124
  Transmission Date: 20180509
  Serious: Yes (Hospitalization)
  Sender: FDA-Public Use
  Company Number: None

PATIENT
  Age: 75 Year
  Sex: Male
  Weight: 56.4 kg

DRUGS (2)
  1. PEMBROLIZUMAB 200MG [Suspect]
     Active Substance: PEMBROLIZUMAB
     Indication: ACUTE MYELOID LEUKAEMIA
     Route: 042
     Dates: start: 20180116
  2. AZACITIDINE 75MG/M2 [Suspect]
     Active Substance: AZACITIDINE
     Indication: ACUTE MYELOID LEUKAEMIA
     Dosage: 75MG/M2 DAYS 1-7 Q 28 DAYS IV
     Route: 042
     Dates: start: 20180108, end: 20180114

REACTIONS (6)
  - Cough [None]
  - Pericardial effusion [None]
  - Pyrexia [None]
  - Pneumonia [None]
  - Neutrophil count decreased [None]
  - Oropharyngeal pain [None]

NARRATIVE: CASE EVENT DATE: 20180120
